FAERS Safety Report 4472295-X (Version None)
Quarter: 2004Q4

REPORT INFORMATION
  Report Type: 
  Country: None (occurrence: None)
  Receive Date: 20041007
  Receipt Date: 20040922
  Transmission Date: 20050328
  Serious: Yes (Hospitalization, Disabling)
  Sender: FDA-Public Use
  Company Number: 2004-04175

PATIENT
  Age: 43 Year
  Sex: Female

DRUGS (3)
  1. LORAZEPAM [Suspect]
     Indication: ANXIETY
     Dosage: SEE IMAGE
     Dates: start: 19940101, end: 19980901
  2. LORAZEPAM [Suspect]
     Indication: ANXIETY
     Dosage: SEE IMAGE
     Dates: start: 19981101, end: 19990201
  3. LORAZEPAM [Suspect]
     Indication: ANXIETY
     Dosage: SEE IMAGE
     Dates: start: 19990201

REACTIONS (9)
  - APHAGIA [None]
  - ASTHENIA [None]
  - BACK PAIN [None]
  - DRUG WITHDRAWAL SYNDROME [None]
  - IMPAIRED WORK ABILITY [None]
  - MUSCLE SPASMS [None]
  - NERVOUS SYSTEM DISORDER [None]
  - POST-TRAUMATIC STRESS DISORDER [None]
  - TREMOR [None]
